FAERS Safety Report 8065808-2 (Version None)
Quarter: 2012Q1

REPORT INFORMATION
  Report Type: 
  Country: None (occurrence: None)
  Receive Date: 20120124
  Receipt Date: 20120113
  Transmission Date: 20120608
  Serious: Yes (Hospitalization)
  Sender: FDA-Public Use
  Company Number: CHPA2012US001312

PATIENT
  Age: 43 Year
  Sex: Female

DRUGS (7)
  1. ANTI-ASTHMATICS [Concomitant]
     Indication: ASTHMA
  2. ACETAMINOPHEN [Concomitant]
  3. EXCEDRIN (MIGRAINE) [Suspect]
     Indication: HEADACHE
     Dosage: BETWEEN 4-6 DF, QD
     Route: 048
     Dates: end: 20120113
  4. IBUPROFEN (ADVIL) [Concomitant]
     Indication: PAIN
  5. DRUG THERAPY NOS [Concomitant]
     Indication: NASOPHARYNGITIS
  6. EXCEDRIN (MIGRAINE) [Suspect]
     Dosage: UNK, UNK
     Route: 048
     Dates: start: 20080101
  7. NAPROSYN [Concomitant]
     Indication: PAIN

REACTIONS (7)
  - ABDOMINAL PAIN UPPER [None]
  - OFF LABEL USE [None]
  - OVERDOSE [None]
  - CONDITION AGGRAVATED [None]
  - VISUAL ACUITY REDUCED [None]
  - VISION BLURRED [None]
  - FEELING JITTERY [None]
